FAERS Safety Report 25555067 (Version 4)
Quarter: 2025Q3

REPORT INFORMATION
  Report Type: Spontaneous
  Country: CA (occurrence: CA)
  Receive Date: 20250715
  Receipt Date: 20250811
  Transmission Date: 20251021
  Serious: No
  Sender: PFIZER
  Company Number: CA-PFIZER INC-202500139111

PATIENT
  Age: 48 Year
  Sex: Female

DRUGS (1)
  1. PREMARIN [Suspect]
     Active Substance: ESTROGENS, CONJUGATED

REACTIONS (1)
  - Fungal infection [Unknown]
